FAERS Safety Report 7708024-3 (Version None)
Quarter: 2011Q3

REPORT INFORMATION
  Report Type: 
  Country: None (occurrence: None)
  Receive Date: 20110824
  Receipt Date: 20110811
  Transmission Date: 20111222
  Serious: Yes (Hospitalization)
  Sender: FDA-Public Use
  Company Number: US-MYLANLABS-2011S1016789

PATIENT
  Age: 24 Year
  Sex: Female

DRUGS (2)
  1. VANCOMYCIN HCL [Suspect]
     Indication: PNEUMONIA
     Dosage: UPTITRATED TO 1G EVERY 8 HOURS
     Route: 042
  2. VANCOMYCIN HCL [Suspect]
     Dosage: UPTITRATED FROM 1G EVERY 12 HOURS
     Route: 042

REACTIONS (2)
  - RENAL TUBULAR NECROSIS [None]
  - RENAL FAILURE ACUTE [None]
